FAERS Safety Report 4660067-2 (Version None)
Quarter: 2005Q2

REPORT INFORMATION
  Report Type: 
  Country: None (occurrence: None)
  Receive Date: 20050512
  Receipt Date: 20041227
  Transmission Date: 20051028
  Serious: No
  Sender: FDA-Public Use
  Company Number: US-GLAXOSMITHKLINE-A0538534A

PATIENT
  Sex: Female

DRUGS (4)
  1. RELAFEN [Suspect]
     Indication: ILL-DEFINED DISORDER
     Route: 048
     Dates: start: 19990101, end: 19990101
  2. DARVOCET [Concomitant]
  3. CELEBREX [Concomitant]
  4. VIOXX [Concomitant]

REACTIONS (1)
  - NAUSEA [None]
